FAERS Safety Report 7144966-8 (Version None)
Quarter: 2010Q4

REPORT INFORMATION
  Report Type: 
  Country: None (occurrence: None)
  Receive Date: 20101123
  Receipt Date: 20101019
  Transmission Date: 20110411
  Serious: No
  Sender: FDA-Public Use
  Company Number: 020712

PATIENT
  Sex: Female
  Weight: 62.1 kg

DRUGS (2)
  1. CIMZIA [Suspect]
     Indication: CROHN'S DISEASE
     Dosage: 400 MG 1X/MONTH SUBCUTANEOUS
     Route: 058
     Dates: start: 20090801
  2. PENTASA [Concomitant]

REACTIONS (5)
  - ABDOMINAL DISTENSION [None]
  - BREAST TENDERNESS [None]
  - DRUG ADMINISTRATION ERROR [None]
  - HEADACHE [None]
  - INJECTION SITE PAIN [None]
